FAERS Safety Report 18596093 (Version 18)
Quarter: 2025Q1

REPORT INFORMATION
  Report Type: Report from Study
  Country: US (occurrence: US)
  Receive Date: 20201209
  Receipt Date: 20250124
  Transmission Date: 20250409
  Serious: Yes (Hospitalization, Other)
  Sender: TAKEDA
  Company Number: US-TAKEDA-2020TUS053778

PATIENT
  Age: 61 Year
  Sex: Female
  Weight: 62 kg

DRUGS (35)
  1. HUMAN IMMUNOGLOBULIN G [Suspect]
     Active Substance: HUMAN IMMUNOGLOBULIN G
     Indication: Congenital hypogammaglobulinaemia
     Dosage: 12 GRAM, 1/WEEK
     Dates: start: 20201118
  2. HUMAN IMMUNOGLOBULIN G [Suspect]
     Active Substance: HUMAN IMMUNOGLOBULIN G
     Indication: Illness
  3. ACETAMINOPHEN [Concomitant]
     Active Substance: ACETAMINOPHEN
  4. EPINEPHRINE [Concomitant]
     Active Substance: EPINEPHRINE
  5. DIPHENHYDRAMINE [Concomitant]
     Active Substance: DIPHENHYDRAMINE
  6. DEPAKOTE [Concomitant]
     Active Substance: DIVALPROEX SODIUM
  7. GENTAMICIN [Concomitant]
     Active Substance: GENTAMICIN
  8. BOTOX [Concomitant]
     Active Substance: ONABOTULINUMTOXINA
  9. TRAMADOL [Concomitant]
     Active Substance: TRAMADOL
  10. PROPRANOLOL HYDROCHLORIDE [Concomitant]
     Active Substance: PROPRANOLOL HYDROCHLORIDE
  11. BETAMETHASONE\CLOTRIMAZOLE [Concomitant]
     Active Substance: BETAMETHASONE\CLOTRIMAZOLE
  12. CLORAZEPATE DIPOTASSIUM [Concomitant]
     Active Substance: CLORAZEPATE DIPOTASSIUM
  13. TIZANIDINE HYDROCHLORIDE [Concomitant]
     Active Substance: TIZANIDINE HYDROCHLORIDE
  14. FENOFIBRATE [Concomitant]
     Active Substance: FENOFIBRATE
  15. VITAMIN B COMPLEX [Concomitant]
     Active Substance: CYANOCOBALAMIN\DEXPANTHENOL\NIACINAMIDE\PYRIDOXINE HYDROCHLORIDE\RIBOFLAVIN 5^-PHOSPHATE SODIUM\THIA
  16. PROMETHAZINE HYDROCHLORIDE [Concomitant]
     Active Substance: PROMETHAZINE HYDROCHLORIDE
  17. VITAMIN D2 [Concomitant]
     Active Substance: ERGOCALCIFEROL
  18. LUNESTA [Concomitant]
     Active Substance: ESZOPICLONE
  19. HYDROXYZINE HYDROCHLORIDE [Concomitant]
     Active Substance: HYDROXYZINE HYDROCHLORIDE
  20. FLUBLOK [Concomitant]
     Active Substance: INFLUENZA A VIRUS A/CALIFORNIA/7/2009 (H1N1) RECOMBINANT HEMAGGLUTININ ANTIGEN\INFLUENZA A VIRUS A/V
  21. GENTAMICIN SULFATE [Concomitant]
     Active Substance: GENTAMICIN SULFATE
  22. ONDANSETRON HYDROCHLORIDE [Concomitant]
     Active Substance: ONDANSETRON HYDROCHLORIDE
  23. FLUBLOK QUADRIVALENT NOS [Concomitant]
     Active Substance: INFLUENZA VIRUS VACCINE
  24. CLORAZEPATE DIPOTASSIUM [Concomitant]
     Active Substance: CLORAZEPATE DIPOTASSIUM
  25. CETIRIZINE HCL [Concomitant]
     Active Substance: CETIRIZINE HYDROCHLORIDE
  26. CYANOCOBALAMIN [Concomitant]
     Active Substance: CYANOCOBALAMIN
  27. LIDOCAINE [Concomitant]
     Active Substance: LIDOCAINE
  28. DIPHENHYDRAMINE HYDROCHLORIDE [Concomitant]
     Active Substance: DIPHENHYDRAMINE HYDROCHLORIDE
  29. MAGNESIUM CHLORIDE [Concomitant]
     Active Substance: MAGNESIUM CHLORIDE
  30. PERCOCET [Concomitant]
     Active Substance: ACETAMINOPHEN\OXYCODONE HYDROCHLORIDE
  31. AIMOVIG [Concomitant]
     Active Substance: ERENUMAB-AOOE
  32. Lmx [Concomitant]
  33. VITAMIN B COMPLEX [Concomitant]
     Active Substance: CYANOCOBALAMIN\DEXPANTHENOL\NIACINAMIDE\PYRIDOXINE HYDROCHLORIDE\RIBOFLAVIN 5^-PHOSPHATE SODIUM\THIA
  34. WELLBUTRIN XL [Concomitant]
     Active Substance: BUPROPION HYDROCHLORIDE
  35. CETIRIZINE HYDROCHLORIDE [Concomitant]
     Active Substance: CETIRIZINE HYDROCHLORIDE

REACTIONS (25)
  - Haematemesis [Unknown]
  - Bronchitis [Unknown]
  - Ulcer haemorrhage [Unknown]
  - Product use in unapproved indication [Unknown]
  - Infusion site pruritus [Unknown]
  - Nausea [Unknown]
  - Device infusion issue [Unknown]
  - Urinary tract infection [Unknown]
  - Illness [Unknown]
  - Oropharyngeal candidiasis [Unknown]
  - Insurance issue [Unknown]
  - Cystitis [Unknown]
  - Haematological infection [Unknown]
  - Infusion related reaction [Unknown]
  - Localised infection [Unknown]
  - Infusion site discharge [Unknown]
  - Injection site haemorrhage [Unknown]
  - Product dose omission issue [Unknown]
  - Device malfunction [Unknown]
  - Allergy to immunoglobulin therapy [Unknown]
  - Infusion site haemorrhage [Unknown]
  - Infusion site scar [Unknown]
  - Infusion site bruising [Unknown]
  - Infusion site pain [Unknown]
  - Pruritus [Unknown]

NARRATIVE: CASE EVENT DATE: 20201118
